FAERS Safety Report 6692337-0 (Version None)
Quarter: 2010Q2

REPORT INFORMATION
  Report Type: 
  Country: None (occurrence: None)
  Receive Date: 20100419
  Receipt Date: 20100405
  Transmission Date: 20101027
  Serious: Yes (Hospitalization)
  Sender: FDA-Public Use
  Company Number: 2010AL001994

PATIENT
  Age: 59 Year
  Sex: Female
  Weight: 87.2267 kg

DRUGS (10)
  1. OXYCODONE HCL [Suspect]
     Indication: PAIN
     Dosage: 15 MG;PRN;PO
     Route: 048
     Dates: start: 20090125
  2. SUNITINIB MALATE [Concomitant]
  3. OXYCONTIN [Concomitant]
  4. SANDOSTATIN [Concomitant]
  5. RITALIN [Concomitant]
  6. CITALOPRAM [Concomitant]
  7. CALCITRIOL [Concomitant]
  8. NORVASC [Concomitant]
  9. PREVACID [Concomitant]
  10. CALCIUM CITRATE [Concomitant]

REACTIONS (2)
  - MENTAL STATUS CHANGES [None]
  - OVERDOSE [None]
